FAERS Safety Report 9938375 (Version 2)
Quarter: 2014Q1

REPORT INFORMATION
  Report Type: Report from Study
  Country: US (occurrence: US)
  Receive Date: 20140303
  Receipt Date: 20140303
  Transmission Date: 20141002
  Serious: No
  Sender: FDA-Public Use
  Company Number: US-ABBVIE-12P-163-0967020-00

PATIENT
  Age: 62 Year
  Sex: Female

DRUGS (8)
  1. HUMIRA [Suspect]
     Indication: CROHN^S DISEASE
     Route: 058
     Dates: start: 20120710
  2. WELLBUTRIN [Concomitant]
     Indication: DEPRESSION
  3. NEXIUM [Concomitant]
     Indication: GASTROOESOPHAGEAL REFLUX DISEASE
  4. ONDANSETRON [Concomitant]
     Indication: NAUSEA
  5. FUROSEMIDE [Concomitant]
     Indication: SWELLING
  6. CLONAZEPAM [Concomitant]
     Indication: NERVOUSNESS
  7. LORTAB [Concomitant]
     Indication: PAIN
     Dosage: 7.5MG - 1 TABLET EVEY 6-8 HOURS AS NEEDED
  8. PHENAZOPYRIDINE [Concomitant]
     Indication: BLADDER SPASM
     Dosage: 600MG = 1 TAB THREE TIMES A DAY AS NEEDED

REACTIONS (9)
  - Dizziness [Recovered/Resolved]
  - Dizziness [Recovered/Resolved]
  - Nausea [Recovered/Resolved]
  - Arthropod sting [Recovered/Resolved]
  - Local swelling [Recovered/Resolved]
  - Injection site haemorrhage [Not Recovered/Not Resolved]
  - Drug dose omission [Not Recovered/Not Resolved]
  - Blood disorder [Not Recovered/Not Resolved]
  - Fungal infection [Not Recovered/Not Resolved]
